FAERS Safety Report 15722966 (Version 2)
Quarter: 2019Q1

REPORT INFORMATION
  Report Type: Report from Study
  Country: JP (occurrence: JP)
  Receive Date: 20181214
  Receipt Date: 20190131
  Transmission Date: 20190417
  Serious: Yes (Hospitalization)
  Sender: FDA-Public Use
  Company Number: JP-SAKK-2018SA330370AA

PATIENT
  Age: 40 Year
  Sex: Male
  Weight: 111.6 kg

DRUGS (4)
  1. LIXISENATIDE [Suspect]
     Active Substance: LIXISENATIDE
     Indication: TYPE 2 DIABETES MELLITUS
     Dosage: 10 UG/DOSE (BEFORE BREAKFAST)
     Route: 058
     Dates: start: 20170328, end: 20170403
  2. LIXISENATIDE [Suspect]
     Active Substance: LIXISENATIDE
     Dosage: 15 UG/DOSE (BEFORE BREAKFAST)
     Route: 058
     Dates: start: 20170404, end: 20170410
  3. ATENOLOL. [Concomitant]
     Active Substance: ATENOLOL
     Indication: PROPHYLAXIS
     Dosage: 50 MG, QD
     Route: 048
  4. LIXISENATIDE [Suspect]
     Active Substance: LIXISENATIDE
     Dosage: 20 UG/DOSE (BEFORE BREAKFAST)
     Route: 058
     Dates: start: 20170411, end: 20180406

REACTIONS (1)
  - Psychotic disorder [Unknown]

NARRATIVE: CASE EVENT DATE: 20180406
